FAERS Safety Report 4546770-3 (Version None)
Quarter: 2005Q1

REPORT INFORMATION
  Report Type: 
  Country: None (occurrence: None)
  Receive Date: 20050105
  Receipt Date: 20041110
  Transmission Date: 20050727
  Serious: Yes (Death, Hospitalization)
  Sender: FDA-Public Use
  Company Number: STA-AE-04-MTX-541

PATIENT
  Age: 67 Year
  Sex: Female

DRUGS (14)
  1. RHEUMATREX [Suspect]
     Indication: RHEUMATOID ARTHRITIS
     Dosage: 6 MG 1X PER 1 WK; ORAL, 4 MG 1X PER 1 WK, 6MG 1X PER 1 WK
     Route: 048
     Dates: start: 20020801, end: 20040101
  2. RHEUMATREX [Suspect]
     Indication: RHEUMATOID ARTHRITIS
     Dosage: 6 MG 1X PER 1 WK; ORAL, 4 MG 1X PER 1 WK, 6MG 1X PER 1 WK
     Route: 048
     Dates: start: 20021001, end: 20040408
  3. RHEUMATREX [Suspect]
     Indication: RHEUMATOID ARTHRITIS
     Dosage: 6 MG 1X PER 1 WK; ORAL, 4 MG 1X PER 1 WK, 6MG 1X PER 1 WK
     Route: 048
     Dates: start: 20040415, end: 20041002
  4. RHEUMATREX [Suspect]
     Indication: RHEUMATOID ARTHRITIS
     Dosage: 8 MG 1X PER 1 WK; ORAL
     Route: 048
     Dates: start: 20040101, end: 20040901
  5. CALCITROL (CALCIUM CARBONATE/CRGOCALCIFEROL/RETINOL) [Concomitant]
  6. EPINASTINE HYDROCHLORIDE (EPINASTINE HYDROCHLORIDE) [Concomitant]
  7. LOXONIN (LOXOPROFEN SODIUM) [Concomitant]
  8. MEFENAMIC ACID [Concomitant]
  9. NORVASC [Concomitant]
  10. PREDNISOLONE [Concomitant]
  11. DIOVAN [Concomitant]
  12. LEUCOVORIN CALCIUM [Concomitant]
  13. KARY UNI (PIRENOXINE) [Concomitant]
  14. OMEPRAL (OMEPRRAZOLE) [Concomitant]

REACTIONS (8)
  - ALOPECIA [None]
  - DIZZINESS [None]
  - EPISTAXIS [None]
  - INTERSTITIAL LUNG DISEASE [None]
  - PARAESTHESIA [None]
  - RESPIRATORY FAILURE [None]
  - STOMATITIS [None]
  - WHITE BLOOD CELL COUNT DECREASED [None]
